FAERS Safety Report 5606012-4 (Version None)
Quarter: 2008Q1

REPORT INFORMATION
  Report Type: 
  Country: None (occurrence: None)
  Receive Date: 20080129
  Receipt Date: 20080115
  Transmission Date: 20080703
  Serious: Yes (Life-Threatening, Hospitalization, Other)
  Sender: FDA-Public Use
  Company Number: US-ELI_LILLY_AND_COMPANY-US200801002970

PATIENT
  Sex: Male

DRUGS (13)
  1. HUMALOG [Suspect]
     Indication: TYPE 1 DIABETES MELLITUS
     Route: 058
     Dates: start: 19940101
  2. HUMULIN R [Suspect]
     Indication: TYPE 1 DIABETES MELLITUS
  3. HUMULIN N [Suspect]
     Indication: TYPE 1 DIABETES MELLITUS
  4. IMURAN [Concomitant]
  5. NEORAL [Concomitant]
  6. CALCITRIOL [Concomitant]
     Indication: HYPERTENSION
  7. NORVASC [Concomitant]
     Indication: HYPERTENSION
  8. ATENOLOL [Concomitant]
     Indication: HYPERTENSION
  9. CLONIDINE [Concomitant]
     Indication: HYPERTENSION
  10. CARDURA [Concomitant]
     Indication: HYPERTENSION
  11. COZAAR [Concomitant]
     Indication: HYPERTENSION
  12. PREDNISONE TAB [Concomitant]
  13. XANAX [Concomitant]
     Indication: HYPERTENSION

REACTIONS (9)
  - CHEST X-RAY ABNORMAL [None]
  - HYPERTENSION [None]
  - LARYNGEAL PAPILLOMA [None]
  - LUNG NEOPLASM MALIGNANT [None]
  - RENAL FAILURE [None]
  - RESPIRATORY ARREST [None]
  - RESTLESS LEGS SYNDROME [None]
  - SLEEP APNOEA SYNDROME [None]
  - TESTIS CANCER [None]
